FAERS Safety Report 9579535 (Version 1)
Quarter: 2013Q4

REPORT INFORMATION
  Report Type: Spontaneous
  Country: US (occurrence: US)
  Receive Date: 20131002
  Receipt Date: 20131002
  Transmission Date: 20140711
  Serious: Yes (Other)
  Sender: FDA-Public Use
  Company Number: US-JNJFOC-20130911886

PATIENT
  Age: 85 Year
  Sex: Female
  Weight: 65.77 kg

DRUGS (3)
  1. TYLENOL EXTRA STRENGTH [Suspect]
     Indication: ARTHRITIS
     Dosage: 3 TIMES DAILY AND ONCE AT BED
     Route: 048
     Dates: end: 20130918
  2. TYLENOL EXTRA STRENGTH [Suspect]
     Indication: ARTHRALGIA
     Dosage: 3 TIMES DAILY AND ONCE AT BED
     Route: 048
     Dates: end: 20130918
  3. LANSOPRAZOLE [Concomitant]
     Indication: NEOPLASM MALIGNANT
     Dosage: INTERVAL 4 YEAR 9 MONTH
     Route: 065

REACTIONS (6)
  - Feeling abnormal [Recovered/Resolved]
  - Abdominal pain upper [Recovered/Resolved]
  - Memory impairment [Unknown]
  - Diarrhoea [Recovered/Resolved]
  - Dizziness [Recovered/Resolved]
  - Somnolence [Unknown]
